FAERS Safety Report 9422043 (Version 2)
Quarter: 2013Q3

REPORT INFORMATION
  Report Type: Spontaneous
  Country: US (occurrence: US)
  Receive Date: 20130726
  Receipt Date: 20130926
  Transmission Date: 20140515
  Serious: Yes (Hospitalization, Other)
  Sender: FDA-Public Use
  Company Number: US-ASTRAZENECA-2013SE54863

PATIENT
  Age: 25921 Day
  Sex: Female
  Weight: 69.4 kg

DRUGS (9)
  1. SEROQUEL XR [Suspect]
     Indication: BIPOLAR DISORDER
     Route: 048
  2. SEROQUEL XR [Suspect]
     Indication: SLEEP DISORDER
     Route: 048
  3. SEROQUEL XR [Suspect]
     Indication: BIPOLAR DISORDER
     Dosage: SEROQUEL, 50-100 MG
     Route: 048
  4. SEROQUEL XR [Suspect]
     Indication: SLEEP DISORDER
     Dosage: SEROQUEL, 50-100 MG
     Route: 048
  5. CITALOPRAM [Suspect]
     Indication: DEPRESSION
     Route: 048
  6. CARBAMAZAPINE [Concomitant]
     Indication: BIPOLAR DISORDER
     Route: 048
  7. TRAZODONE [Concomitant]
     Indication: SLEEP DISORDER
     Route: 048
  8. TRAZODONE [Concomitant]
     Indication: AGITATION
     Route: 048
  9. LITHIUM [Concomitant]

REACTIONS (8)
  - Serotonin syndrome [Recovered/Resolved]
  - Mania [Recovered/Resolved]
  - Delirium [Recovered/Resolved]
  - Ataxia [Recovered/Resolved]
  - Depressed level of consciousness [Recovered/Resolved]
  - Mental status changes [Recovered/Resolved]
  - Akathisia [Recovered/Resolved]
  - Off label use [Unknown]
